FAERS Safety Report 17711621 (Version 2)
Quarter: 2020Q2

REPORT INFORMATION
  Report Type: Spontaneous
  Country: JP (occurrence: JP)
  Receive Date: 20200427
  Receipt Date: 20200518
  Transmission Date: 20200714
  Serious: Yes (Other)
  Sender: FDA-Public Use
  Company Number: JP-JNJFOC-20200423231

PATIENT
  Age: 31 Year
  Sex: Female

DRUGS (2)
  1. METHOTREXATE. [Concomitant]
     Active Substance: METHOTREXATE
     Indication: RHEUMATOID ARTHRITIS
     Route: 042
  2. REMICADE [Suspect]
     Active Substance: INFLIXIMAB
     Indication: RHEUMATOID ARTHRITIS
     Dosage: 3 MG/KG 0 (INITIAL DOSE OF 3 MG/KG), 2, AND 6 WEEKS AND THEN EVERY 8 WEEKS
     Route: 042

REACTIONS (3)
  - Lupus-like syndrome [Unknown]
  - Erythema [Unknown]
  - Drug ineffective [Unknown]
